FAERS Safety Report 16895335 (Version 2)
Quarter: 2019Q4

REPORT INFORMATION
  Report Type: Report from Study
  Country: JP (occurrence: JP)
  Receive Date: 20191008
  Receipt Date: 20191121
  Transmission Date: 20200122
  Serious: Yes (Hospitalization)
  Sender: FDA-Public Use
  Company Number: JP-ACTELION-A-CH2019-196345

PATIENT
  Age: 28 Year
  Sex: Male

DRUGS (17)
  1. SARPOGRELATE HYDROCHLORIDE [Concomitant]
     Active Substance: SARPOGRELATE HYDROCHLORIDE
  2. RIZABEN [Concomitant]
     Active Substance: TRANILAST
  3. LOXOPROFEN [Concomitant]
     Active Substance: LOXOPROFEN
  4. ATORVASTATIN [Concomitant]
     Active Substance: ATORVASTATIN
  5. EDIROL [Concomitant]
     Active Substance: ELDECALCITOL
  6. RECALBON [Concomitant]
  7. RHEUMATREX [Suspect]
     Active Substance: METHOTREXATE SODIUM
     Dosage: 6 MG, Q1WEEK
     Route: 048
     Dates: start: 20170609, end: 20180607
  8. DAIPHEN [Concomitant]
     Active Substance: SULFAMETHOXAZOLE\TRIMETHOPRIM
  9. TRACLEER [Suspect]
     Active Substance: BOSENTAN
     Indication: SCLERODERMA ASSOCIATED DIGITAL ULCER
     Dosage: 62.5 MG, BID
     Route: 048
     Dates: start: 20170309
  10. RHEUMATREX [Suspect]
     Active Substance: METHOTREXATE SODIUM
     Indication: SYSTEMIC SCLERODERMA
     Dosage: 10 MG, Q1WEEK
     Route: 048
     Dates: start: 20170309, end: 20170406
  11. BERAPROST SODIUM [Concomitant]
     Active Substance: BERAPROST SODIUM
  12. FOLIAMIN [Concomitant]
     Active Substance: FOLIC ACID
  13. GASLON [Concomitant]
     Active Substance: IRSOGLADINE MALEATE
  14. LANSOPRAZOLE. [Concomitant]
     Active Substance: LANSOPRAZOLE
  15. ETODOLAC. [Concomitant]
     Active Substance: ETODOLAC
  16. RHEUMATREX [Suspect]
     Active Substance: METHOTREXATE SODIUM
     Dosage: 8 MG, Q1WEEK
     Route: 048
     Dates: start: 20170407, end: 20170608
  17. HIRUDOID [Concomitant]
     Active Substance: GLYCOSAMINOGLYCANS

REACTIONS (3)
  - Nephrotic syndrome [Recovering/Resolving]
  - Hodgkin^s disease [Recovering/Resolving]
  - Lymphadenopathy [Recovering/Resolving]

NARRATIVE: CASE EVENT DATE: 20180607
